FAERS Safety Report 4541800-7 (Version None)
Quarter: 2004Q4

REPORT INFORMATION
  Report Type: 
  Country: None (occurrence: None)
  Receive Date: 20041227
  Receipt Date: 20041215
  Transmission Date: 20050328
  Serious: Yes (Hospitalization)
  Sender: FDA-Public Use
  Company Number: 2004112767

PATIENT
  Age: 44 Year
  Sex: Female

DRUGS (4)
  1. ALPRAZOLAM [Suspect]
     Indication: ILL-DEFINED DISORDER
     Dosage: 12 DF (ONCE), ORAL
     Route: 048
     Dates: start: 20040727, end: 20040727
  2. ALIMEMAZINE (ALIMEMAZINE) [Suspect]
     Indication: ILL-DEFINED DISORDER
     Dosage: 30 ML (ONCE), ORAL
     Route: 048
     Dates: start: 20040727, end: 20040727
  3. ZOLPIDEM TARTRATE [Suspect]
     Indication: ILL-DEFINED DISORDER
     Dosage: 28 DF (ONCE), ORAL
     Route: 048
     Dates: start: 20040727, end: 20040727
  4. CITALOPRAM [Suspect]
     Indication: ILL-DEFINED DISORDER
     Dosage: 28 DF (ONCE), ORAL
     Route: 048
     Dates: start: 20040727, end: 20040727

REACTIONS (4)
  - GLASGOW COMA SCALE ABNORMAL [None]
  - MULTIPLE DRUG OVERDOSE INTENTIONAL [None]
  - MYDRIASIS [None]
  - SOMNOLENCE [None]
